FAERS Safety Report 8758619 (Version 2)
Quarter: 2012Q4

REPORT INFORMATION
  Report Type: 
  Country: AR (occurrence: AR)
  Receive Date: 20120829
  Receipt Date: 20120829
  Transmission Date: 20130627
  Serious: Yes (Other)
  Sender: FDA-Public Use
  Company Number: PHHY2012AR058743

PATIENT
  Age: 75 Year
  Sex: Male

DRUGS (5)
  1. RIFAMPICIN [Suspect]
     Indication: LEPROMATOUS LEPROSY
     Dosage: 600 mg, UNK
  2. CLOFAZIMINE [Suspect]
     Indication: LEPROMATOUS LEPROSY
     Dosage: 300 mg, UNK
  3. CLOFAZIMINE [Suspect]
     Dosage: 50 mg, UNK
  4. DAPSONE [Suspect]
     Indication: LEPROMATOUS LEPROSY
     Dosage: 100 mg, UNK
  5. DAPSONE [Suspect]
     Dosage: 100 mg, UNK

REACTIONS (4)
  - Type 1 lepra reaction [Recovered/Resolved]
  - Ulnar neuritis [Recovered/Resolved]
  - Hyperaesthesia [Recovered/Resolved]
  - Skin hyperpigmentation [Unknown]
